FAERS Safety Report 8174069-5 (Version None)
Quarter: 2012Q1

REPORT INFORMATION
  Report Type: 
  Country: None (occurrence: None)
  Receive Date: 20120229
  Receipt Date: 20120222
  Transmission Date: 20120608
  Serious: Yes (Other)
  Sender: FDA-Public Use
  Company Number: VE-GENZYME-POMP-1002089

PATIENT
  Sex: Male

DRUGS (2)
  1. MYOZYME [Suspect]
     Indication: GLYCOGEN STORAGE DISEASE TYPE II
     Dosage: UNK
     Route: 042
     Dates: start: 20050814
  2. CLOBAZAM [Suspect]
     Indication: CONVULSION
     Dosage: UNK
     Dates: end: 20120218

REACTIONS (8)
  - ASTHENIA [None]
  - RESPIRATORY DISORDER [None]
  - MALNUTRITION [None]
  - MOTOR DYSFUNCTION [None]
  - RESPIRATORY TRACT INFECTION [None]
  - CONVULSION [None]
  - SPEECH DISORDER [None]
  - LUNG INFECTION [None]
